FAERS Safety Report 20422146 (Version 3)
Quarter: 2022Q1

REPORT INFORMATION
  Report Type: Spontaneous
  Country: US (occurrence: US)
  Receive Date: 20220203
  Receipt Date: 20220315
  Transmission Date: 20220423
  Serious: Yes (Death, Life-Threatening, Hospitalization, Other)
  Sender: FDA-Public Use
  Company Number: US-GILEAD-2022-0568312

PATIENT
  Age: 63 Year
  Sex: Male
  Weight: 104 kg

DRUGS (2)
  1. YESCARTA [Suspect]
     Active Substance: AXICABTAGENE CILOLEUCEL
     Indication: Diffuse large B-cell lymphoma
     Route: 042
     Dates: start: 20220103, end: 20220103
  2. MESALAMINE [Concomitant]
     Active Substance: MESALAMINE
     Indication: Colitis ulcerative

REACTIONS (8)
  - Intestinal perforation [Fatal]
  - Diffuse large B-cell lymphoma [Not Recovered/Not Resolved]
  - Pancytopenia [Not Recovered/Not Resolved]
  - Coagulopathy [Recovered/Resolved]
  - Cytokine release syndrome [Recovered/Resolved]
  - Hypotension [Recovered/Resolved]
  - Immune effector cell-associated neurotoxicity syndrome [Recovered/Resolved]
  - Encephalopathy [Recovered/Resolved]

NARRATIVE: CASE EVENT DATE: 20220104
